FAERS Safety Report 14700087 (Version 1)
Quarter: 2018Q1

REPORT INFORMATION
  Report Type: Spontaneous
  Country: US (occurrence: US)
  Receive Date: 20180330
  Receipt Date: 20180330
  Transmission Date: 20180509
  Serious: No
  Sender: FDA-Public Use
  Company Number: US-GLAXOSMITHKLINE-US2018048137

PATIENT
  Sex: Female

DRUGS (1)
  1. ABREVA [Suspect]
     Active Substance: DOCOSANOL
     Indication: ORAL HERPES
     Dosage: UNK
     Dates: start: 20180314, end: 20180320

REACTIONS (6)
  - Application site swelling [Unknown]
  - Application site rash [Unknown]
  - Oral herpes [Unknown]
  - Application site pain [Unknown]
  - Condition aggravated [Unknown]
  - Hypersensitivity [Unknown]
